FAERS Safety Report 4573007-1 (Version None)
Quarter: 2005Q1

REPORT INFORMATION
  Report Type: 
  Country: None (occurrence: None)
  Receive Date: 20050204
  Receipt Date: 20041210
  Transmission Date: 20050727
  Serious: Yes (Death)
  Sender: FDA-Public Use
  Company Number: 2004102925

PATIENT
  Age: 68 Year
  Sex: Male

DRUGS (4)
  1. CELEBREX [Suspect]
     Indication: ARTHRALGIA
  2. AMIODARONE HCL [Concomitant]
  3. LOSARTAN (LOSARTAN) [Concomitant]
  4. ANTIDIABETIC DRUG (UNSPECIFIED) (ANTI-DIABETICS) [Concomitant]

REACTIONS (1)
  - ACUTE PULMONARY OEDEMA [None]
